FAERS Safety Report 6610028-9 (Version None)
Quarter: 2010Q1

REPORT INFORMATION
  Report Type: 
  Country: None (occurrence: None)
  Receive Date: 20100302
  Receipt Date: 20100223
  Transmission Date: 20100710
  Serious: Yes (Other)
  Sender: FDA-Public Use
  Company Number: CHPA2010US03919

PATIENT
  Age: 17 Year
  Sex: Male
  Weight: 108.84 kg

DRUGS (7)
  1. EXCEDRIN (MIGRAINE) [Suspect]
     Indication: TOOTHACHE
     Dosage: 2 DF, Q6H
     Route: 048
     Dates: start: 20100211, end: 20100213
  2. IBUPROFEN (ADVIL) [Suspect]
     Indication: TOOTHACHE
     Dosage: 1 DF, QD
     Route: 048
     Dates: start: 20100213
  3. IBUPROFEN (ADVIL) [Suspect]
     Dosage: 800 MG, QD
     Route: 048
     Dates: start: 20100216, end: 20100217
  4. VICODIN [Suspect]
     Indication: TOOTHACHE
     Dosage: UNK, UNK
     Route: 048
     Dates: start: 20100217, end: 20100219
  5. CLINDAMYCIN [Suspect]
     Indication: GINGIVAL INFECTION
     Dosage: UNK, UNK
     Route: 048
     Dates: start: 20100217
  6. DARVOCET-N 100 [Suspect]
     Dosage: UNK, UNK
     Route: 048
     Dates: start: 20100219, end: 20100221
  7. TYLENOL [Suspect]
     Dosage: 2 DF, ONCE/SINGLE
     Route: 048
     Dates: start: 20100221, end: 20100221

REACTIONS (15)
  - ABDOMINAL PAIN UPPER [None]
  - CHEST PAIN [None]
  - DEHYDRATION [None]
  - DENTAL CARIES [None]
  - DIARRHOEA [None]
  - DRUG INEFFECTIVE [None]
  - DYSPNOEA [None]
  - GINGIVAL INFECTION [None]
  - HEADACHE [None]
  - HEPATITIS [None]
  - HYPERHIDROSIS [None]
  - TOOTH ABSCESS [None]
  - VOMITING [None]
  - WEIGHT DECREASED [None]
  - YELLOW SKIN [None]
